FAERS Safety Report 12266120 (Version 2)
Quarter: 2019Q3

REPORT INFORMATION
  Report Type: Report from Study
  Country: CA (occurrence: CA)
  Receive Date: 20160413
  Receipt Date: 20190922
  Transmission Date: 20191004
  Serious: Yes (Other)
  Sender: FDA-Public Use
  Company Number: CA-CELGENEUS-CAN-2016014748

PATIENT
  Age: 78 Year
  Sex: Male
  Weight: 57.7 kg

DRUGS (75)
  1. ROSUVASTATIN. [Concomitant]
     Active Substance: ROSUVASTATIN
     Indication: HYPERCHOLESTEROLAEMIA
     Dosage: 5 MILLIGRAM
     Route: 065
     Dates: start: 2008
  2. FINASTERIDE. [Concomitant]
     Active Substance: FINASTERIDE
     Indication: BENIGN PROSTATIC HYPERPLASIA
     Dosage: 5 MILLIGRAM
     Route: 048
     Dates: start: 20110609
  3. BIO K [Concomitant]
     Indication: SUPPLEMENTATION THERAPY
     Dosage: 1 TABLET
     Route: 048
     Dates: start: 20150929, end: 20151008
  4. NITROGLYCERIN SPRAY [Concomitant]
     Active Substance: NITROGLYCERIN
     Route: 048
     Dates: start: 20101017, end: 20101017
  5. MUPIROCIN. [Concomitant]
     Active Substance: MUPIROCIN
     Route: 048
     Dates: start: 20101017, end: 20101017
  6. HEPARIN [Concomitant]
     Active Substance: HEPARIN SODIUM
     Indication: VASCULAR CAUTERISATION
     Route: 041
     Dates: start: 20120226, end: 20120227
  7. PRO-AZITHROMYCIN [Concomitant]
     Indication: EAR INFECTION
     Dosage: 250 MILLIGRAM
     Route: 048
     Dates: start: 20120528, end: 20120531
  8. PREDNISOLONE. [Concomitant]
     Active Substance: PREDNISOLONE
     Route: 065
     Dates: start: 20130121, end: 20130127
  9. CLOBETASOL PROPIONATE. [Concomitant]
     Active Substance: CLOBETASOL PROPIONATE
     Indication: ROSACEA
     Route: 048
     Dates: start: 20130308, end: 20130403
  10. FENTANYL. [Concomitant]
     Active Substance: FENTANYL
     Indication: EPIDURAL ANALGESIA
     Route: 048
     Dates: start: 20141216, end: 20141217
  11. POTASSIUM [Concomitant]
     Active Substance: POTASSIUM
     Indication: PROPHYLAXIS
     Route: 041
     Dates: start: 20141217, end: 20141218
  12. SERAX [Concomitant]
     Active Substance: OXAZEPAM
     Indication: INSOMNIA
     Route: 048
     Dates: start: 20150801, end: 20150801
  13. DEXAMETHASONE. [Suspect]
     Active Substance: DEXAMETHASONE
     Indication: PLASMA CELL MYELOMA
     Dosage: 40 MILLIGRAM
     Route: 048
     Dates: start: 20100930
  14. ACETYLSALICYLIC ACID [Concomitant]
     Active Substance: ASPIRIN
     Indication: CARDIOVASCULAR EVENT PROPHYLAXIS
     Dosage: 81 MILLIGRAM
     Route: 065
     Dates: start: 2007
  15. SENNOSIDES. [Concomitant]
     Active Substance: SENNOSIDES
     Indication: CONSTIPATION
     Route: 048
     Dates: start: 20110106
  16. ACETAMINOPHEN. [Concomitant]
     Active Substance: ACETAMINOPHEN
     Indication: NECK PAIN
     Route: 048
     Dates: start: 20141216
  17. IMOVANE [Concomitant]
     Active Substance: ZOPICLONE
     Indication: INSOMNIA
     Route: 048
     Dates: start: 20140710
  18. NITROGLYCERIN SPRAY [Concomitant]
     Active Substance: NITROGLYCERIN
     Indication: ANGINA PECTORIS
     Route: 048
     Dates: start: 20101002, end: 20101002
  19. CIPROFLOXACIN. [Concomitant]
     Active Substance: CIPROFLOXACIN
     Route: 048
     Dates: start: 20120621, end: 20120627
  20. TAMSULOSINE PROPIONATE [Concomitant]
     Indication: BENIGN PROSTATIC HYPERPLASIA
     Dosage: .8 MILLIGRAM
     Route: 048
     Dates: start: 20110609, end: 20150610
  21. TAMSULOSINE PROPIONATE [Concomitant]
     Route: 048
     Dates: start: 20101017, end: 20101017
  22. MOXIFLOXACIN. [Concomitant]
     Active Substance: MOXIFLOXACIN
     Route: 048
     Dates: start: 20101017, end: 20101017
  23. TEVA-DOXYCYCLINE [Concomitant]
     Active Substance: DOXYCYCLINE
     Indication: ROSACEA
     Dosage: 50 MILLIGRAM
     Route: 048
     Dates: start: 20130308, end: 20130410
  24. CEFAZOLINE [Concomitant]
     Active Substance: CEFAZOLIN SODIUM
     Indication: INFECTION
     Dosage: 2 MILLIGRAM
     Route: 048
     Dates: start: 20141216, end: 20141216
  25. ACETAMINOPHEN. [Concomitant]
     Active Substance: ACETAMINOPHEN
     Indication: ABDOMINAL PAIN
  26. ROBAX PLATINUM [Concomitant]
     Active Substance: IBUPROFEN\METHOCARBAMOL
     Indication: NECK PAIN
  27. TRAZODONE CHLORHYDRATE [Concomitant]
     Indication: INSOMNIA
     Route: 048
     Dates: start: 20101025, end: 20110218
  28. CIPROFLOXACIN. [Concomitant]
     Active Substance: CIPROFLOXACIN
     Indication: URINARY TRACT INFECTION
     Dosage: 1000 MILLIGRAM
     Route: 048
     Dates: start: 20110614, end: 20110622
  29. NEPAFENAC [Concomitant]
     Active Substance: NEPAFENAC
     Indication: CATARACT
     Route: 065
     Dates: start: 20130107, end: 20130113
  30. NEPAFENAC [Concomitant]
     Active Substance: NEPAFENAC
     Route: 065
     Dates: start: 20130128, end: 20130203
  31. MIRABEGRON [Concomitant]
     Active Substance: MIRABEGRON
     Indication: BENIGN PROSTATIC HYPERPLASIA
     Dosage: 25 MILLIGRAM
     Route: 048
     Dates: start: 20130706, end: 20130810
  32. TYLENOL [Concomitant]
     Active Substance: ACETAMINOPHEN
     Indication: BENIGN PROSTATIC HYPERPLASIA
     Route: 048
     Dates: start: 20131003, end: 20140319
  33. DEXAMETHASONE. [Suspect]
     Active Substance: DEXAMETHASONE
     Dosage: 8 MILLIGRAM
     Route: 048
     Dates: start: 20160115
  34. IBUPROFEN. [Concomitant]
     Active Substance: IBUPROFEN
     Indication: NECK PAIN
     Route: 048
     Dates: start: 20111015
  35. CALCIUM [Concomitant]
     Active Substance: CALCIUM
     Indication: SUPPLEMENTATION THERAPY
     Dosage: 1000 MILLIGRAM
     Route: 048
     Dates: start: 20141026
  36. IMODIUM [Concomitant]
     Active Substance: LOPERAMIDE HYDROCHLORIDE
     Indication: DIARRHOEA
     Route: 048
     Dates: start: 20150820
  37. AREDIA [Concomitant]
     Active Substance: PAMIDRONATE DISODIUM
     Indication: METASTASES TO BONE
     Dosage: 90 MILLIGRAM
     Route: 041
     Dates: start: 20140807
  38. APO-AMOXI CLAV [Concomitant]
     Active Substance: AMOXICILLIN\CLAVULANATE POTASSIUM
     Indication: PNEUMONIA
     Dosage: 1500 MILLIGRAM
     Route: 048
     Dates: start: 20150929, end: 20151008
  39. APO-HYDROXYZINE [Concomitant]
     Active Substance: HYDROXYZINE HYDROCHLORIDE
     Route: 048
     Dates: start: 20101017, end: 20101017
  40. CC-5013 [Suspect]
     Active Substance: LENALIDOMIDE
     Dosage: 10 MILLIGRAM
     Route: 048
     Dates: start: 20160115
  41. NITROGLYCERIN SPRAY [Concomitant]
     Active Substance: NITROGLYCERIN
     Route: 048
     Dates: start: 20110904, end: 20111008
  42. MUPIROCIN. [Concomitant]
     Active Substance: MUPIROCIN
     Indication: VASCULAR CAUTERISATION
     Route: 048
     Dates: start: 20110209, end: 20120215
  43. CIPRODEX [Concomitant]
     Active Substance: CIPROFLOXACIN HYDROCHLORIDE\DEXAMETHASONE
     Route: 048
     Dates: start: 20101017, end: 20101017
  44. METOPROLOL. [Concomitant]
     Active Substance: METOPROLOL
     Indication: PROPHYLAXIS
     Dosage: 50 MILLIGRAM
     Route: 048
     Dates: start: 20141125, end: 20141214
  45. BUPIVACAINE. [Concomitant]
     Active Substance: BUPIVACAINE
     Indication: EPIDURAL ANALGESIA
     Route: 048
     Dates: start: 20141216, end: 20141217
  46. VOLUVEN [Concomitant]
     Active Substance: HYDROXYETHYL STARCH 130/0.4
     Indication: PROPHYLAXIS
     Route: 041
     Dates: start: 20141217, end: 20141218
  47. LASIX [Concomitant]
     Active Substance: FUROSEMIDE
     Indication: OEDEMA PERIPHERAL
     Dosage: 20 MILLIGRAM
     Route: 048
     Dates: start: 20140713
  48. PAMIDRONATE DISODIUM. [Concomitant]
     Active Substance: PAMIDRONATE DISODIUM
     Indication: BONE DISORDER
     Dosage: 90 MILLIGRAM
     Route: 041
     Dates: start: 20140807
  49. CIPROFLOXACIN. [Concomitant]
     Active Substance: CIPROFLOXACIN
     Indication: EAR INFECTION
     Route: 048
     Dates: start: 20101017, end: 20101017
  50. CIPRODEX [Concomitant]
     Active Substance: CIPROFLOXACIN HYDROCHLORIDE\DEXAMETHASONE
     Indication: EAR INFECTION
     Route: 048
     Dates: start: 20120528, end: 20120606
  51. METRONIDAZOLE. [Concomitant]
     Active Substance: METRONIDAZOLE
     Indication: INFECTION
     Dosage: 500 MILLIGRAM
     Route: 048
     Dates: start: 20141216, end: 20141216
  52. DOCUSATE SODIUM. [Concomitant]
     Active Substance: DOCUSATE SODIUM
     Indication: CONSTIPATION
     Dosage: 100 MILLIGRAM
     Route: 048
     Dates: start: 20110106
  53. ACETAMINOPHEN. [Concomitant]
     Active Substance: ACETAMINOPHEN
     Indication: BACK PAIN
     Dosage: 1300 MILLIGRAM
     Route: 048
     Dates: start: 20140206
  54. VITAMIN D [Concomitant]
     Active Substance: VITAMIN D NOS
     Indication: SUPPLEMENTATION THERAPY
     Dosage: 400 IU
     Route: 048
     Dates: start: 20141026
  55. EFUDEX [Concomitant]
     Active Substance: FLUOROURACIL
     Indication: SKIN LESION
     Dosage: 1 APPLICATION
     Route: 061
     Dates: start: 20151112, end: 20151227
  56. FLU VACCINE [Concomitant]
     Active Substance: INFLUENZA VIRUS VACCINE
     Indication: INFLUENZA IMMUNISATION
     Dosage: .5 MILLILITER
     Route: 030
     Dates: start: 20151103, end: 20151103
  57. PNEUMOVAX 23 [Concomitant]
     Active Substance: PNEUMOCOCCAL VACCINE, POLYVALENT 23
     Indication: PNEUMOCOCCAL IMMUNISATION
     Dosage: .5 MILLILITER
     Route: 030
     Dates: start: 20151103, end: 20151103
  58. ROBITUSSIN (GUAIFENESIN) [Concomitant]
     Active Substance: GUAIFENESIN
     Indication: PNEUMONIA
     Dosage: 2 TEASPOON
     Route: 048
     Dates: start: 20150904, end: 20151010
  59. APO-HYDROXYZINE [Concomitant]
     Active Substance: HYDROXYZINE HYDROCHLORIDE
     Indication: VASCULAR PURPURA
     Dosage: 25 MILLIGRAM
     Route: 048
     Dates: start: 20110107, end: 20110119
  60. NEPAFENAC [Concomitant]
     Active Substance: NEPAFENAC
     Route: 065
     Dates: start: 20130114, end: 20130120
  61. NEPAFENAC [Concomitant]
     Active Substance: NEPAFENAC
     Route: 065
     Dates: start: 20130121, end: 20130127
  62. PREDNISOLONE. [Concomitant]
     Active Substance: PREDNISOLONE
     Indication: CATARACT
     Route: 065
     Dates: start: 20130107, end: 20130113
  63. STATEX [Concomitant]
     Indication: ABDOMINAL PAIN
     Route: 048
     Dates: start: 20141220, end: 20141227
  64. CELEBREX [Concomitant]
     Active Substance: CELECOXIB
     Indication: BACK PAIN
     Route: 048
     Dates: start: 20150625, end: 20150627
  65. CC-5013 [Suspect]
     Active Substance: LENALIDOMIDE
     Indication: PLASMA CELL MYELOMA
     Dosage: 10 MILLIGRAM
     Route: 048
     Dates: start: 20100930
  66. ROBAX PLATINUM [Concomitant]
     Active Substance: IBUPROFEN\METHOCARBAMOL
     Indication: BACK PAIN
     Dosage: 2 TABLET
     Route: 048
     Dates: start: 20140612
  67. ATIVAN [Concomitant]
     Active Substance: LORAZEPAM
     Indication: INSOMNIA
     Route: 048
     Dates: start: 20140711
  68. CELECOXIB. [Concomitant]
     Active Substance: CELECOXIB
     Indication: ARTHRALGIA
     Route: 048
     Dates: start: 2008, end: 20100930
  69. HEPARIN [Concomitant]
     Active Substance: HEPARIN SODIUM
     Route: 048
     Dates: start: 20101017, end: 20101017
  70. PRO-AZITHROMYCIN [Concomitant]
     Route: 048
     Dates: start: 20101017, end: 20101017
  71. MOXIFLOXACIN. [Concomitant]
     Active Substance: MOXIFLOXACIN
     Indication: CATARACT
     Route: 065
     Dates: start: 20130107, end: 20130113
  72. PREDNISOLONE. [Concomitant]
     Active Substance: PREDNISOLONE
     Route: 065
     Dates: start: 20130114, end: 20130120
  73. PREDNISOLONE. [Concomitant]
     Active Substance: PREDNISOLONE
     Route: 065
     Dates: start: 20130128, end: 20130203
  74. DILAUDID [Concomitant]
     Active Substance: HYDROMORPHONE HYDROCHLORIDE
     Indication: ABDOMINAL PAIN
     Route: 048
     Dates: start: 20141218, end: 20141218
  75. NAPROXEN. [Concomitant]
     Active Substance: NAPROXEN
     Indication: ABDOMINAL PAIN
     Route: 048
     Dates: start: 20141216, end: 20141217

REACTIONS (1)
  - Rectal adenocarcinoma [Recovered/Resolved]

NARRATIVE: CASE EVENT DATE: 20151102
